FAERS Safety Report 4511764-0 (Version None)
Quarter: 2004Q4

REPORT INFORMATION
  Report Type: 
  Country: None (occurrence: None)
  Receive Date: 20041123
  Receipt Date: 20041123
  Transmission Date: 20050328
  Serious: Yes (Other)
  Sender: FDA-Public Use
  Company Number: None

PATIENT
  Age: 56 Year
  Sex: Male
  Weight: 90.7 kg

DRUGS (8)
  1. ZOLPIDEM [Suspect]
  2. OMEPRAZOLE [Concomitant]
  3. GABAPENTIN [Concomitant]
  4. IPATROPIUM BROMIDE [Concomitant]
  5. ALBUTEROL [Concomitant]
  6. CITALOPRAM HYDROBROMIDE [Concomitant]
  7. HYDROXYZINE PAMOATE [Concomitant]
  8. RISPERIDONE [Concomitant]

REACTIONS (1)
  - ANXIETY [None]
